FAERS Safety Report 8207899-1 (Version None)
Quarter: 2012Q1

REPORT INFORMATION
  Report Type: 
  Country: None (occurrence: None)
  Receive Date: 20120314
  Receipt Date: 20120312
  Transmission Date: 20120608
  Serious: No
  Sender: FDA-Public Use
  Company Number: US-TEVA-327484USA

PATIENT
  Sex: Female
  Weight: 74.91 kg

DRUGS (4)
  1. OLMESARTAN MEDOXOMIL [Concomitant]
  2. ATENOLOL [Concomitant]
  3. PROAIR HFA [Suspect]
     Indication: ASTHMA
     Route: 055
     Dates: start: 20111101, end: 20120301
  4. LEVOTHYROXINE SODIUM [Concomitant]

REACTIONS (3)
  - HEART RATE INCREASED [None]
  - DIZZINESS [None]
  - OROPHARYNGEAL PAIN [None]
